FAERS Safety Report 12078832 (Version 1)
Quarter: 2016Q1

REPORT INFORMATION
  Report Type: Report from Study
  Country: TH (occurrence: TH)
  Receive Date: 20160216
  Receipt Date: 20160216
  Transmission Date: 20160526
  Serious: Yes (Hospitalization)
  Sender: FDA-Public Use
  Company Number: TH-ROCHE-1138819

PATIENT
  Age: 52 Year
  Sex: Female
  Weight: 48.6 kg

DRUGS (16)
  1. DEXAMETHASONE. [Concomitant]
     Active Substance: DEXAMETHASONE
     Indication: PREMEDICATION
     Route: 065
     Dates: start: 20120430, end: 20121025
  2. TRAMADOL. [Concomitant]
     Active Substance: TRAMADOL
     Indication: PAIN
     Route: 065
     Dates: start: 20120521
  3. CYPROHEPTADIN [Concomitant]
     Route: 065
     Dates: start: 20120430, end: 20121125
  4. PIRITON [Concomitant]
     Active Substance: CHLORPHENIRAMINE MALEATE
     Indication: PREMEDICATION
     Route: 065
     Dates: start: 20120430, end: 20121025
  5. ONSIA [Concomitant]
     Indication: PREMEDICATION
     Route: 065
     Dates: start: 20120430, end: 20120525
  6. ONSIA [Concomitant]
     Indication: PROPHYLAXIS OF NAUSEA AND VOMITING
  7. ONSIA [Concomitant]
     Indication: PROPHYLAXIS OF NAUSEA AND VOMITING
  8. DOXORUBICIN [Suspect]
     Active Substance: DOXORUBICIN
     Indication: DIFFUSE LARGE B-CELL LYMPHOMA
     Dosage: MOST RECENT DOSE 71.5 MG PRIOR TO THE FEBRILE NEUTROPENIA  25/OCT/2012?MOST RECENT DOSE - 71.5 MG PR
     Route: 042
     Dates: start: 20120430
  9. ACICLOVIR [Concomitant]
     Active Substance: ACYCLOVIR
     Indication: INFECTION PROPHYLAXIS
     Route: 065
     Dates: start: 20120530, end: 20121125
  10. OBINUTUZUMAB [Suspect]
     Active Substance: OBINUTUZUMAB
     Indication: DIFFUSE LARGE B-CELL LYMPHOMA
     Dosage: STRENGTH = 4MG/ML. MOST RECENT DOSE -250ML PRIOR TO THE ONSET WAS OF FEBRILE NEUTROPENIA 25/OCT/2012
     Route: 042
     Dates: start: 20120430
  11. PARACETAMOL [Concomitant]
     Active Substance: ACETAMINOPHEN
     Indication: PREMEDICATION
     Route: 065
     Dates: start: 20120430, end: 20120525
  12. BACTRIM [Concomitant]
     Active Substance: SULFAMETHOXAZOLE\TRIMETHOPRIM
     Indication: INFECTION PROPHYLAXIS
     Route: 065
     Dates: start: 20120530, end: 20121125
  13. SENOKOT [Concomitant]
     Active Substance: SENNOSIDES
     Route: 065
     Dates: start: 20120430, end: 20120504
  14. CYCLOPHOSPHAMIDE. [Suspect]
     Active Substance: CYCLOPHOSPHAMIDE
     Indication: DIFFUSE LARGE B-CELL LYMPHOMA
     Dosage: MOST RECENT DOSE - 1072.5 MG PRIOR TO THE ONSET WAS OF FEBRILE NEUTROPENIA 25/OCT/2012?MOST RECENT D
     Route: 042
     Dates: start: 20120430
  15. VINCRISTINE [Suspect]
     Active Substance: VINCRISTINE
     Indication: DIFFUSE LARGE B-CELL LYMPHOMA
     Dosage: MOST RECENT DOSE - 2MG PRIOR TO THE ONSET OF FEBRILE NEUTROPENIA WAS 14/SEP/2012?MOST RECENT DOSE -
     Route: 040
     Dates: start: 20120430
  16. PREDNISONE. [Suspect]
     Active Substance: PREDNISONE
     Indication: DIFFUSE LARGE B-CELL LYMPHOMA
     Dosage: MOST RECENT DOSE -100MG PRIOR TO ONSET OF FEBRILE NEUTROPENIA: 29/OCT/2012?MOST RECENT DOSE - 100 MG
     Route: 048
     Dates: start: 20120430

REACTIONS (2)
  - Febrile neutropenia [Recovered/Resolved]
  - Neutropenia [Recovered/Resolved]

NARRATIVE: CASE EVENT DATE: 20120508
